FAERS Safety Report 25225201 (Version 1)
Quarter: 2025Q2

REPORT INFORMATION
  Report Type: Report from Study
  Country: JP (occurrence: JP)
  Receive Date: 20250422
  Receipt Date: 20250422
  Transmission Date: 20250717
  Serious: Yes (Other)
  Sender: ALEXION PHARMACEUTICALS
  Company Number: JP-ASTRAZENECA-230066448_011820_P_1

PATIENT
  Age: 13 Year
  Weight: 37.7 kg

DRUGS (3)
  1. KOSELUGO [Suspect]
     Active Substance: SELUMETINIB
     Indication: Neurofibromatosis
     Dosage: 80 MILLIGRAM, QD
  2. KOSELUGO [Suspect]
     Active Substance: SELUMETINIB
  3. KOSELUGO [Suspect]
     Active Substance: SELUMETINIB

REACTIONS (3)
  - Rhabdomyolysis [Not Recovered/Not Resolved]
  - Dermatitis acneiform [Not Recovered/Not Resolved]
  - Hepatic function abnormal [Not Recovered/Not Resolved]
